FAERS Safety Report 9912175 (Version 2)
Quarter: 2014Q1

REPORT INFORMATION
  Report Type: Report from Study
  Country: IT (occurrence: IT)
  Receive Date: 20140220
  Receipt Date: 20140220
  Transmission Date: 20141002
  Serious: Yes (Hospitalization)
  Sender: FDA-Public Use
  Company Number: IT-BRISTOL-MYERS SQUIBB COMPANY-19857440

PATIENT
  Age: 76 Year
  Sex: Female
  Weight: 48 kg

DRUGS (3)
  1. CETUXIMAB [Suspect]
     Indication: HEAD AND NECK CANCER METASTATIC
     Dosage: 1DF: 60 UNITS NOS
     Dates: start: 20130418
  2. CISPLATIN [Suspect]
     Indication: HEAD AND NECK CANCER METASTATIC
     Dosage: 1DF: 250 UNITS NOS
     Dates: start: 20130418
  3. PACLITAXEL [Suspect]
     Indication: HEAD AND NECK CANCER METASTATIC
     Route: 042
     Dates: start: 20130418

REACTIONS (1)
  - Hypokalaemia [Recovered/Resolved]
